FAERS Safety Report 6296522-1 (Version None)
Quarter: 2009Q3

REPORT INFORMATION
  Report Type: 
  Country: None (occurrence: None)
  Receive Date: 20090804
  Receipt Date: 20090729
  Transmission Date: 20100115
  Serious: Yes (Hospitalization)
  Sender: FDA-Public Use
  Company Number: B0557287B

PATIENT
  Sex: Female
  Weight: 72.6 kg

DRUGS (2)
  1. LAPATINIB [Suspect]
     Indication: BREAST CANCER
     Dosage: 1500MG PER DAY
     Route: 048
     Dates: start: 20090109
  2. PACLITAXEL [Suspect]
     Indication: BREAST CANCER
     Dosage: 80MGM2 PER DAY
     Route: 042
     Dates: start: 20090109

REACTIONS (9)
  - ATELECTASIS [None]
  - BLOOD POTASSIUM DECREASED [None]
  - CENTRAL LINE INFECTION [None]
  - CORYNEBACTERIUM INFECTION [None]
  - MALAISE [None]
  - PNEUMONIA [None]
  - PYREXIA [None]
  - RESPIRATORY TRACT INFECTION [None]
  - SEPSIS [None]
